FAERS Safety Report 8558610-6 (Version None)
Quarter: 2012Q3

REPORT INFORMATION
  Report Type: 
  Country: None (occurrence: None)
  Receive Date: 20120801
  Receipt Date: 20120726
  Transmission Date: 20120928
  Serious: Yes (Hospitalization, Disabling, Other)
  Sender: FDA-Public Use
  Company Number: DE-ROCHE-CID000000002060751

PATIENT
  Sex: Female

DRUGS (13)
  1. ARAVA [Suspect]
     Indication: RHEUMATOID ARTHRITIS
     Route: 048
     Dates: start: 20080101, end: 20120605
  2. RAMIPRIL [Concomitant]
     Dosage: 5/25 MG
     Route: 048
  3. DOSS (GERMANY) [Concomitant]
     Indication: OSTEOPOROSIS
     Route: 048
  4. NITREPRESS [Concomitant]
     Route: 048
  5. METOPROLOL TARTRATE [Concomitant]
     Route: 048
  6. PREDNISOLONE [Concomitant]
     Route: 048
  7. COLESTYRAMIN [Concomitant]
     Route: 048
     Dates: start: 20120614
  8. MABTHERA [Suspect]
     Indication: RHEUMATOID ARTHRITIS
     Route: 042
     Dates: start: 20120601, end: 20120615
  9. ACTONEL [Suspect]
     Indication: OSTEOPOROSIS
     Route: 048
     Dates: start: 20120526, end: 20120615
  10. TILIDINE [Concomitant]
     Indication: OSTEOPOROSIS
     Dosage: 50/4 MG
     Route: 048
  11. MOXONIDIN [Concomitant]
     Indication: HYPERTENSION
     Route: 048
  12. RAMIPRIL [Concomitant]
     Route: 048
  13. LEVOTHYROXINE SODIUM [Concomitant]
     Indication: HYPOTHYROIDISM
     Route: 048

REACTIONS (4)
  - LIVER FUNCTION TEST ABNORMAL [None]
  - GAMMA-GLUTAMYLTRANSFERASE INCREASED [None]
  - ASPARTATE AMINOTRANSFERASE INCREASED [None]
  - ALANINE AMINOTRANSFERASE INCREASED [None]
